FAERS Safety Report 8460671 (Version 4)
Quarter: 2012Q4

REPORT INFORMATION
  Report Type: 
  Country: JP (occurrence: JP)
  Receive Date: 20120315
  Receipt Date: 20121101
  Transmission Date: 20130627
  Serious: Yes (Other)
  Sender: FDA-Public Use
  Company Number: JP-JNJFOC-20120212685

PATIENT
  Age: 82 Year
  Sex: Female
  Weight: 50 kg

DRUGS (36)
  1. TRAMCET [Suspect]
     Indication: PAIN
     Dosage: 3 per 1 day
     Route: 048
     Dates: start: 20110913, end: 20111005
  2. TRAMCET [Suspect]
     Indication: PAIN
     Dosage: 1 per 1 day
     Route: 048
     Dates: start: 20110826, end: 20110828
  3. TRAMCET [Suspect]
     Indication: PAIN
     Dosage: 2 per 1 day
     Route: 048
     Dates: start: 20110829, end: 20110912
  4. TRAMCET [Suspect]
     Indication: PAIN
     Dosage: 1 per 1 day
     Route: 048
     Dates: start: 20120124, end: 20120215
  5. TRAMCET [Suspect]
     Indication: PAIN
     Dosage: 1 DF x 1 per 1 day
     Route: 048
     Dates: start: 20120118, end: 20120123
  6. TRAMCET [Suspect]
     Indication: TRIGEMINAL NEURALGIA
     Dosage: 1 DF x 1 per 1 day
     Route: 048
     Dates: start: 20120118, end: 20120123
  7. TRAMCET [Suspect]
     Indication: TRIGEMINAL NEURALGIA
     Dosage: 3 per 1 day
     Route: 048
     Dates: start: 20110913, end: 20111005
  8. TRAMCET [Suspect]
     Indication: TRIGEMINAL NEURALGIA
     Dosage: 1 per 1 day
     Route: 048
     Dates: start: 20110826, end: 20110828
  9. TRAMCET [Suspect]
     Indication: TRIGEMINAL NEURALGIA
     Dosage: 2 per 1 day
     Route: 048
     Dates: start: 20110829, end: 20110912
  10. TRAMCET [Suspect]
     Indication: TRIGEMINAL NEURALGIA
     Dosage: 1 per 1 day
     Route: 048
     Dates: start: 20120124, end: 20120215
  11. WARFARIN POTASSIUM [Interacting]
     Indication: MYOCARDIAL INFARCTION
     Dosage: 1 per day
     Route: 048
     Dates: start: 20120216
  12. WARFARIN POTASSIUM [Interacting]
     Indication: MYOCARDIAL INFARCTION
     Dosage: 1 per day
     Route: 048
     Dates: start: 2003
  13. WARFARIN POTASSIUM [Interacting]
     Indication: MYOCARDIAL INFARCTION
     Dosage: 1 per 1 day
     Route: 048
     Dates: start: 201110, end: 20111011
  14. WARFARIN POTASSIUM [Interacting]
     Indication: MYOCARDIAL INFARCTION
     Dosage: 1 per 1 day
     Route: 048
     Dates: start: 20111006, end: 201110
  15. WARFARIN POTASSIUM [Interacting]
     Indication: MYOCARDIAL INFARCTION
     Dosage: 1 per 1 day
     Route: 048
     Dates: start: 20120229, end: 20120229
  16. WARFARIN POTASSIUM [Interacting]
     Indication: MYOCARDIAL INFARCTION
     Dosage: 1 per 1 day
     Route: 048
     Dates: start: 20111027, end: 20120215
  17. WARFARIN POTASSIUM [Interacting]
     Indication: MYOCARDIAL INFARCTION
     Dosage: 1 per 1 day
     Route: 048
     Dates: start: 20111012, end: 20111026
  18. WARFARIN POTASSIUM [Interacting]
     Indication: MYOCARDIAL INFARCTION
     Dosage: 1 per 1 day
     Route: 048
     Dates: start: 20110803, end: 20111005
  19. BAYASPIRIN [Suspect]
     Indication: PRODUCT USED FOR UNKNOWN INDICATION
     Route: 048
     Dates: start: 20120216
  20. BAYASPIRIN [Suspect]
     Indication: PRODUCT USED FOR UNKNOWN INDICATION
     Dosage: 1 per day
     Route: 048
     Dates: start: 2003, end: 20120215
  21. DIGOXIN [Concomitant]
     Route: 065
  22. TEGRETOL [Concomitant]
     Indication: TRIGEMINAL NEURALGIA
     Dosage: 1 per 1 day
     Route: 048
  23. TEGRETOL [Concomitant]
     Indication: TRIGEMINAL NEURALGIA
     Route: 048
     Dates: start: 20060706
  24. TANATRIL [Concomitant]
     Indication: HYPERTENSION
     Route: 048
     Dates: start: 20101020
  25. AMLODIN OD [Concomitant]
     Indication: HYPERTENSION
     Route: 048
     Dates: start: 20110112
  26. LANSOPRAZOLE [Concomitant]
     Indication: GASTROOESOPHAGEAL REFLUX DISEASE
     Route: 048
     Dates: start: 20110112
  27. ZETIA [Concomitant]
     Indication: HYPERLIPIDAEMIA
     Route: 048
     Dates: start: 20101020
  28. CRESTOR [Concomitant]
     Indication: HYPERLIPIDAEMIA
     Route: 048
     Dates: start: 20100512
  29. PRORENAL [Concomitant]
     Indication: LUMBAR SPINAL STENOSIS
     Route: 048
     Dates: start: 20110502
  30. PRORENAL [Concomitant]
     Indication: LUMBAR SPINAL STENOSIS
     Route: 048
  31. KAMAG G [Concomitant]
     Route: 048
  32. TEGRETOL [Concomitant]
     Route: 048
  33. NEUROTROPIN [Concomitant]
     Route: 048
  34. TRYPTANOL [Concomitant]
     Indication: DEPRESSION
     Route: 048
     Dates: start: 20110608
  35. TRYPTANOL [Concomitant]
     Indication: INSOMNIA
     Route: 048
     Dates: start: 20110608
  36. FLUTIDE [Concomitant]
     Indication: ASTHMA
     Route: 055

REACTIONS (3)
  - Platelet count decreased [Recovered/Resolved]
  - Prothrombin time prolonged [Recovered/Resolved]
  - Drug interaction [Recovered/Resolved]
